FAERS Safety Report 7544877-X (Version None)
Quarter: 2011Q2

REPORT INFORMATION
  Report Type: 
  Country: None (occurrence: None)
  Receive Date: 20110614
  Receipt Date: 20110601
  Transmission Date: 20111010
  Serious: Yes (Other)
  Sender: FDA-Public Use
  Company Number: US-BAYER-2011-048067

PATIENT
  Sex: Female

DRUGS (1)
  1. MIRENA [Suspect]
     Indication: CONTRACEPTION
     Dosage: 52 MG, ONCE

REACTIONS (3)
  - VAGINAL HAEMORRHAGE [None]
  - DEVICE DISLOCATION [None]
  - PREMENSTRUAL SYNDROME [None]
